FAERS Safety Report 9047449 (Version 1)
Quarter: 2013Q1

REPORT INFORMATION
  Report Type: Spontaneous
  Country: US (occurrence: US)
  Receive Date: 20130201
  Receipt Date: 20130201
  Transmission Date: 20140127
  Serious: No
  Sender: FDA-Public Use
  Company Number: US-ABBOTT-12P-163-1028971-00

PATIENT
  Sex: Female
  Weight: 52.21 kg

DRUGS (3)
  1. HUMIRA [Suspect]
     Indication: CROHN^S DISEASE
     Dates: start: 20121015
  2. MEDROXY-PROGESTERONE [Concomitant]
     Indication: HORMONE REPLACEMENT THERAPY
  3. VITAMIN B 12 [Concomitant]
     Indication: IMMUNODEFICIENCY

REACTIONS (1)
  - Injection site erythema [Not Recovered/Not Resolved]
